FAERS Safety Report 8580888-3 (Version None)
Quarter: 2012Q3

REPORT INFORMATION
  Report Type: 
  Country: None (occurrence: None)
  Receive Date: 20120809
  Receipt Date: 20120731
  Transmission Date: 20120928
  Serious: Yes (Hospitalization, Disabling)
  Sender: FDA-Public Use
  Company Number: US-BAYER-2010-001714

PATIENT
  Age: 37 Year
  Sex: Female
  Weight: 126.98 kg

DRUGS (6)
  1. YAZ [Suspect]
     Dosage: UNK
     Dates: start: 20071201, end: 20081001
  2. METFORMIN HYDROCHLORIDE [Concomitant]
     Dosage: UNK
     Dates: start: 20081028
  3. TAPAZOLE [Concomitant]
     Dosage: UNK
     Dates: start: 20081028
  4. JANUVIA [Concomitant]
     Dosage: UNK
     Dates: start: 20081028
  5. DEPO-PROVERA [Concomitant]
  6. ASMANEX TWISTHALER [Concomitant]

REACTIONS (2)
  - ISCHAEMIC STROKE [None]
  - CEREBROVASCULAR ACCIDENT [None]
